FAERS Safety Report 8165846-5 (Version None)
Quarter: 2012Q1

REPORT INFORMATION
  Report Type: 
  Country: None (occurrence: None)
  Receive Date: 20120103
  Receipt Date: 20111021
  Transmission Date: 20120608
  Serious: No
  Sender: FDA-Public Use
  Company Number: AE-2011-002522

PATIENT
  Age: 54 Year
  Sex: Male

DRUGS (3)
  1. RIBAVIRIN [Concomitant]
  2. INCIVEK [Suspect]
     Dates: start: 20110101
  3. PEGASYS [Concomitant]

REACTIONS (8)
  - PRURITUS [None]
  - DRY EYE [None]
  - ORAL HERPES [None]
  - DRY SKIN [None]
  - FATIGUE [None]
  - NAUSEA [None]
  - DYSPHAGIA [None]
  - CHAPPED LIPS [None]
